FAERS Safety Report 7401064-3 (Version None)
Quarter: 2011Q2

REPORT INFORMATION
  Report Type: 
  Country: None (occurrence: None)
  Receive Date: 20110407
  Receipt Date: 20110316
  Transmission Date: 20111010
  Serious: Yes (Other)
  Sender: FDA-Public Use
  Company Number: FR-PFIZER INC-2011048225

PATIENT
  Age: 33 Year
  Sex: Male

DRUGS (3)
  1. TADALAFIL [Concomitant]
     Dosage: UNK
  2. CEFPODOXIME PROXETIL [Suspect]
     Indication: ACUTE SINUSITIS
     Dosage: 200 MG, 1X/DAY
     Route: 048
     Dates: start: 20110210, end: 20110211
  3. DERINOX [Concomitant]
     Dosage: UNK
     Dates: start: 20110211

REACTIONS (3)
  - COLITIS [None]
  - ABDOMINAL PAIN [None]
  - DIARRHOEA HAEMORRHAGIC [None]
